FAERS Safety Report 16132877 (Version 1)
Quarter: 2019Q1

REPORT INFORMATION
  Report Type: Spontaneous
  Country: US (occurrence: US)
  Receive Date: 20190329
  Receipt Date: 20190329
  Transmission Date: 20190418
  Serious: No
  Sender: FDA-Public Use
  Company Number: US-SA-2019SA085185

PATIENT
  Sex: Male

DRUGS (2)
  1. PRALUENT [Suspect]
     Active Substance: ALIROCUMAB
     Dosage: UNK UNK, OTHER
     Route: 058
  2. PRALUENT [Suspect]
     Active Substance: ALIROCUMAB
     Dosage: UNK UNK, OTHER
     Route: 058
     Dates: start: 201703

REACTIONS (1)
  - Product dose omission [Unknown]
